FAERS Safety Report 18398803 (Version 1)
Quarter: 2020Q4

REPORT INFORMATION
  Report Type: Spontaneous
  Country: GB (occurrence: GB)
  Receive Date: 20201019
  Receipt Date: 20201019
  Transmission Date: 20210114
  Serious: Yes (Disabling)
  Sender: FDA-Public Use
  Company Number: GB-TEVA-2020-GB-1838807

PATIENT
  Age: 73 Year
  Sex: Female
  Weight: 60 kg

DRUGS (8)
  1. FOSTAIR [Concomitant]
     Active Substance: BECLOMETHASONE\FORMOTEROL
     Dosage: 4 DOSAGE FORMS
     Dates: start: 20190318
  2. SEEBRI BREEZHALER [Concomitant]
     Active Substance: GLYCOPYRROLATE
     Dosage: 1 DOSAGE FORMS
     Route: 055
     Dates: start: 20180723
  3. DOXYCYCLINE. [Suspect]
     Active Substance: DOXYCYCLINE
     Dosage: 100 MG
     Route: 048
     Dates: start: 20200718
  4. VAGIFEM [Concomitant]
     Active Substance: ESTRADIOL
     Dosage: ONE EVERY DAY FOR 2 WEEKS THEN TWICE WEEKLY AFTER
     Dates: start: 20200718
  5. DOXYCYCLINE. [Suspect]
     Active Substance: DOXYCYCLINE
     Dosage: THEN TAKE ONE, UNIT DOSE: 2 DOSAGE FORMS
     Route: 065
     Dates: start: 20200619, end: 20200624
  6. LANSOPRAZOLE. [Concomitant]
     Active Substance: LANSOPRAZOLE
     Dosage: 1 DOSAGE FORMS
     Dates: start: 20200626
  7. LEVOTHYROXINE. [Concomitant]
     Active Substance: LEVOTHYROXINE
     Dosage: 1 DOSAGE FORMS
     Dates: start: 20180712
  8. SALBUTAMOL [Concomitant]
     Active Substance: ALBUTEROL
     Dosage: AS NEEDED UNIT DOSE: 2 DOSAGE FORMS
     Route: 055
     Dates: start: 20180712

REACTIONS (2)
  - Abdominal pain [Unknown]
  - Vomiting [Unknown]
